FAERS Safety Report 18866887 (Version 1)
Quarter: 2021Q1

REPORT INFORMATION
  Report Type: Spontaneous
  Country: US (occurrence: US)
  Receive Date: 20210209
  Receipt Date: 20210209
  Transmission Date: 20210420
  Serious: No
  Sender: FDA-Public Use
  Company Number: None

PATIENT
  Age: 30 Year
  Sex: Female
  Weight: 64.35 kg

DRUGS (24)
  1. SYMBICORT [Concomitant]
     Active Substance: BUDESONIDE\FORMOTEROL FUMARATE DIHYDRATE
  2. TURMERIC [Concomitant]
     Active Substance: HERBALS\TURMERIC
  3. AJOVY [Suspect]
     Active Substance: FREMANEZUMAB-VFRM
     Indication: MIGRAINE PROPHYLAXIS
     Dosage: ?          QUANTITY:1 INJECTION(S);OTHER FREQUENCY:MONTHLY;OTHER ROUTE:INJECTED INTO RIGHT THIGH?
     Route: 058
     Dates: start: 20201112
  4. FLUTICASONE. [Concomitant]
     Active Substance: FLUTICASONE
  5. NERIVIO DEVICE [Concomitant]
  6. MAG L?THREONATE [Concomitant]
  7. DESVENLAFAXINE. [Concomitant]
     Active Substance: DESVENLAFAXINE
  8. BOTOX [Concomitant]
     Active Substance: ONABOTULINUMTOXINA
  9. CLARITIN [Concomitant]
     Active Substance: LORATADINE
  10. RIBOFLAVIN [Concomitant]
     Active Substance: RIBOFLAVIN
  11. SOOLANTRA [Concomitant]
     Active Substance: IVERMECTIN
  12. ALIGN [Concomitant]
     Active Substance: BIFIDOBACTERIUM LONGUM SUBSP. INFANTIS
  13. VERAPAMIL [Concomitant]
     Active Substance: VERAPAMIL HYDROCHLORIDE
  14. NORTRIPTYLINE [Concomitant]
     Active Substance: NORTRIPTYLINE
  15. SULFACETAMIDE SULFUR SOLUTION [Concomitant]
  16. VITAMIN C CRYSTALS [Concomitant]
  17. MAGNESIUM GLYCINATE [Concomitant]
     Active Substance: MAGNESIUM GLYCINATE
  18. NARATRIPTAN [Concomitant]
     Active Substance: NARATRIPTAN HYDROCHLORIDE
  19. KETOCONAZOLE 2% SHAMPOO [Concomitant]
     Active Substance: KETOCONAZOLE
  20. MELATONIN [Concomitant]
     Active Substance: MELATONIN
  21. UBRELVY [Concomitant]
     Active Substance: UBROGEPANT
  22. PROGESTERONE. [Concomitant]
     Active Substance: PROGESTERONE
  23. MELOXICAM. [Concomitant]
     Active Substance: MELOXICAM
  24. NAPROXEN. [Concomitant]
     Active Substance: NAPROXEN

REACTIONS (3)
  - Injection site pruritus [None]
  - Injection site erythema [None]
  - Injection site urticaria [None]

NARRATIVE: CASE EVENT DATE: 20210206
